FAERS Safety Report 9266955 (Version 1)
Quarter: 2013Q2

REPORT INFORMATION
  Report Type: Spontaneous
  Country: US (occurrence: US)
  Receive Date: 20130502
  Receipt Date: 20130502
  Transmission Date: 20140414
  Serious: No
  Sender: FDA-Public Use
  Company Number: US-PFIZER INC-2013136564

PATIENT
  Age: 41 Year
  Sex: Female
  Weight: 77.1 kg

DRUGS (2)
  1. ZIPRASIDONE HCL [Suspect]
     Dosage: 80 MG, 1X/DAY
     Route: 048
  2. ZIPRASIDONE HCL [Suspect]
     Dosage: 40 MG, 1X/DAY
     Route: 048

REACTIONS (1)
  - Drug ineffective [Unknown]
